FAERS Safety Report 5860204-8 (Version None)
Quarter: 2008Q3

REPORT INFORMATION
  Report Type: 
  Country: None (occurrence: None)
  Receive Date: 20080818
  Receipt Date: 20080707
  Transmission Date: 20090109
  Serious: No
  Sender: FDA-Public Use
  Company Number: WAES 0807USA01178

PATIENT
  Age: 47 Year
  Sex: Male

DRUGS (2)
  1. JANUVIA [Suspect]
     Indication: DIABETES MELLITUS
     Dosage: BID/PO
     Route: 048
     Dates: start: 20080623
  2. LANTUS [Concomitant]

REACTIONS (7)
  - ABDOMINAL PAIN UPPER [None]
  - CHOKING SENSATION [None]
  - CONTUSION [None]
  - DYSPHAGIA [None]
  - INAPPROPRIATE SCHEDULE OF DRUG ADMINISTRATION [None]
  - OEDEMA PERIPHERAL [None]
  - STOMACH DISCOMFORT [None]
